FAERS Safety Report 16742587 (Version 1)
Quarter: 2019Q3

REPORT INFORMATION
  Report Type: Spontaneous
  Country: US (occurrence: US)
  Receive Date: 20190826
  Receipt Date: 20190826
  Transmission Date: 20191005
  Serious: Yes (Hospitalization)
  Sender: FDA-Public Use
  Company Number: US-SHIRE-US201927463

PATIENT
  Sex: Male

DRUGS (1)
  1. GAMMAGARD [Suspect]
     Active Substance: HUMAN IMMUNOGLOBULIN G
     Indication: CHRONIC INFLAMMATORY DEMYELINATING POLYRADICULONEUROPATHY
     Dosage: UNK
     Route: 042

REACTIONS (5)
  - Product availability issue [Unknown]
  - Asthenia [Unknown]
  - Product dose omission [Unknown]
  - Fall [Unknown]
  - Dysstasia [Unknown]
